FAERS Safety Report 14714193 (Version 2)
Quarter: 2018Q3

REPORT INFORMATION
  Report Type: Spontaneous
  Country: RU (occurrence: RU)
  Receive Date: 20180404
  Receipt Date: 20180710
  Transmission Date: 20181010
  Serious: Yes (Other)
  Sender: FDA-Public Use
  Company Number: RU-JNJFOC-20171125707

PATIENT
  Age: 3 Decade
  Sex: Female

DRUGS (1)
  1. SIMPONI [Suspect]
     Active Substance: GOLIMUMAB
     Indication: COLITIS ULCERATIVE
     Dosage: GOLIMUMAB THERAPY FOR 11 MONTHS
     Route: 058
     Dates: start: 201702, end: 201802

REACTIONS (4)
  - Exposure during pregnancy [Recovered/Resolved]
  - Pyrexia [Unknown]
  - Amniocentesis abnormal [Unknown]
  - Foetal death [Unknown]

NARRATIVE: CASE EVENT DATE: 2017
